FAERS Safety Report 9583213 (Version 1)
Quarter: 2013Q4

REPORT INFORMATION
  Report Type: Spontaneous
  Country: US (occurrence: US)
  Receive Date: 20131002
  Receipt Date: 20131002
  Transmission Date: 20140711
  Serious: No
  Sender: FDA-Public Use
  Company Number: US-AMGEN-USASP2013045607

PATIENT
  Age: 54 Year
  Sex: Female
  Weight: 107.94 kg

DRUGS (9)
  1. ENBREL [Suspect]
     Indication: PRODUCT USED FOR UNKNOWN INDICATION
     Dosage: 50 MG, QWK
     Route: 058
  2. METHOTREXATE [Concomitant]
     Dosage: 2.5 MG, UNK
  3. LIPITOR [Concomitant]
     Dosage: 80 MG, UNK
  4. LISINOPRIL [Concomitant]
     Dosage: 5 MG, UNK
  5. AMITRIPTYLIN [Concomitant]
     Dosage: 75 MG, UNK
  6. VITAMIN D                          /00107901/ [Concomitant]
     Dosage: 1000 UNIT, UNK
  7. FLEXERIL                           /00428402/ [Concomitant]
     Dosage: 5 MG, UNK
  8. STOOL SOFTENER [Concomitant]
     Dosage: 100-30
  9. PERCOCET                           /00446701/ [Concomitant]
     Dosage: 7.5-500

REACTIONS (6)
  - Burning sensation [Unknown]
  - Pain in extremity [Unknown]
  - Musculoskeletal stiffness [Unknown]
  - Local swelling [Unknown]
  - Joint swelling [Unknown]
  - Skin wrinkling [Unknown]
